FAERS Safety Report 4638703-6 (Version None)
Quarter: 2005Q2

REPORT INFORMATION
  Report Type: 
  Country: None (occurrence: None)
  Receive Date: 20050419
  Receipt Date: 20050406
  Transmission Date: 20051028
  Serious: Yes (Life-Threatening, Hospitalization, Congenital Anomaly)
  Sender: FDA-Public Use
  Company Number: AU-BOEHRINGER INGELHEIM PHARMACEUTICALS, INC.-2005-BP-05685AU

PATIENT
  Sex: Female
  Weight: 77.7 kg

DRUGS (6)
  1. MICARDIS [Suspect]
     Route: 048
  2. PANAMAX [Suspect]
     Indication: OSTEOARTHRITIS
     Route: 048
  3. ADALAT [Suspect]
     Indication: HYPERTENSION
     Route: 048
     Dates: start: 19980101
  4. ATENOLOL [Suspect]
     Indication: HYPERTENSION
     Route: 048
     Dates: start: 20040701
  5. NAPROSYN CR [Suspect]
     Indication: OSTEOARTHRITIS
     Route: 048
  6. BACTRIM [Concomitant]
     Dates: start: 20040901

REACTIONS (1)
  - ANAPHYLACTIC REACTION [None]
